FAERS Safety Report 12305298 (Version 3)
Quarter: 2016Q3

REPORT INFORMATION
  Report Type: Spontaneous
  Country: US (occurrence: US)
  Receive Date: 20160426
  Receipt Date: 20160805
  Transmission Date: 20161109
  Serious: No
  Sender: FDA-Public Use
  Company Number: US-GLAXOSMITHKLINE-US2016GSK049404

PATIENT
  Sex: Female

DRUGS (1)
  1. VENTOLIN HFA [Suspect]
     Active Substance: ALBUTEROL SULFATE
     Indication: ASTHMA
     Dosage: UNK
     Dates: start: 201602

REACTIONS (5)
  - Influenza [Unknown]
  - Extra dose administered [Unknown]
  - Respiratory tract infection viral [Unknown]
  - Intentional product use issue [Unknown]
  - Drug dose omission [Not Recovered/Not Resolved]
